FAERS Safety Report 9370569 (Version 3)
Quarter: 2013Q3

REPORT INFORMATION
  Report Type: Spontaneous
  Country: US (occurrence: US)
  Receive Date: 20130626
  Receipt Date: 20130729
  Transmission Date: 20140515
  Serious: Yes (Death, Hospitalization, Other)
  Sender: FDA-Public Use
  Company Number: US-PFIZER INC-2013186192

PATIENT
  Age: 78 Year
  Sex: Female

DRUGS (1)
  1. REVATIO [Suspect]
     Indication: PULMONARY ARTERIAL HYPERTENSION
     Dosage: 20 MG, 3X/DAY
     Dates: start: 20121023, end: 2013

REACTIONS (3)
  - Sepsis [Fatal]
  - Pneumonia aspiration [Fatal]
  - General physical health deterioration [Fatal]
